FAERS Safety Report 5960978-1 (Version None)
Quarter: 2008Q4

REPORT INFORMATION
  Report Type: 
  Country: None (occurrence: None)
  Receive Date: 20081121
  Receipt Date: 20081110
  Transmission Date: 20090506
  Serious: Yes (Congenital Anomaly)
  Sender: FDA-Public Use
  Company Number: JP-BRISTOL-MYERS SQUIBB COMPANY-14385546

PATIENT
  Age: 4 Month
  Weight: 1 kg

DRUGS (2)
  1. ABILIFY [Suspect]
     Dosage: 13MAY08-14MAY08 6MG QD; 15MAY08-18MAY08 6MG BID; 19MAY08-24MAY08 6MG TID.
     Route: 064
     Dates: start: 20080513, end: 20080524
  2. ZOLOFT [Concomitant]
     Dates: end: 20080524

REACTIONS (2)
  - PREGNANCY [None]
  - UNDERWEIGHT [None]
